FAERS Safety Report 17901788 (Version 1)
Quarter: 2020Q2

REPORT INFORMATION
  Report Type: Spontaneous
  Country: US (occurrence: US)
  Receive Date: 20200616
  Receipt Date: 20200616
  Transmission Date: 20200714
  Serious: Yes (Hospitalization)
  Sender: FDA-Public Use
  Company Number: US-LOREAL USA PRODUCTS, INC.-2020LOR00003

PATIENT
  Sex: Female

DRUGS (2)
  1. NEW MUSHROOM EXTRACT VITAMIN [Concomitant]
     Dosage: UNK, ^ON AND OFF^ (TAKEN MORNING OF 24-MAY-2020)
     Dates: start: 202003
  2. SOCOLOR 505 - MATRIX [P-PHENYLENEDIAMINE] [Suspect]
     Active Substance: P-PHENYLENEDIAMINE
     Dosage: UNK
     Dates: start: 20200524, end: 20200524

REACTIONS (1)
  - Anaphylactic shock [Recovering/Resolving]

NARRATIVE: CASE EVENT DATE: 20200524
